FAERS Safety Report 10422264 (Version 2)
Quarter: 2014Q3

REPORT INFORMATION
  Report Type: Spontaneous
  Country: US (occurrence: US)
  Receive Date: 20140901
  Receipt Date: 20140912
  Transmission Date: 20150326
  Serious: No
  Sender: FDA-Public Use
  Company Number: US-PFIZER INC-2014242459

PATIENT
  Age: 61 Year
  Sex: Female
  Weight: 90.7 kg

DRUGS (6)
  1. PRISTIQ EXTENDED RELEASE [Suspect]
     Active Substance: DESVENLAFAXINE SUCCINATE
     Indication: ANXIETY
  2. HYDROCODONE [Concomitant]
     Active Substance: HYDROCODONE
     Indication: PAIN
     Dosage: 35 MG, UNK
  3. PRISTIQ EXTENDED RELEASE [Suspect]
     Active Substance: DESVENLAFAXINE SUCCINATE
     Indication: DEPRESSION
  4. PRISTIQ EXTENDED RELEASE [Suspect]
     Active Substance: DESVENLAFAXINE SUCCINATE
     Indication: MOOD ALTERED
     Dosage: 50 MG, 1X/DAY
     Route: 048
     Dates: start: 20140827
  5. CLONAZEPAM. [Concomitant]
     Active Substance: CLONAZEPAM
     Indication: ANXIETY
     Dosage: 1 MG, UNK
  6. PRISTIQ EXTENDED RELEASE [Suspect]
     Active Substance: DESVENLAFAXINE SUCCINATE
     Indication: MENTAL DISORDER
     Dosage: 50 MG, DAILY
     Dates: start: 2012, end: 2012

REACTIONS (3)
  - Hyperhidrosis [Unknown]
  - Intentional product misuse [Unknown]
  - Nausea [Unknown]

NARRATIVE: CASE EVENT DATE: 201408
